FAERS Safety Report 9954660 (Version 2)
Quarter: 2014Q1

REPORT INFORMATION
  Report Type: Report from Study
  Country: US (occurrence: US)
  Receive Date: 20140304
  Receipt Date: 20140304
  Transmission Date: 20141002
  Serious: No
  Sender: FDA-Public Use
  Company Number: US-ABBVIE-13P-163-1064683-00

PATIENT
  Age: 59 Year
  Sex: Female

DRUGS (13)
  1. HUMIRA [Suspect]
     Indication: RHEUMATOID ARTHRITIS
  2. HUMIRA [Suspect]
     Dates: start: 20130419
  3. FORTEO [Concomitant]
     Indication: OSTEOPOROSIS
     Dosage: IN STOMACH
     Route: 050
  4. FOLIC ACID [Concomitant]
     Indication: RHEUMATOID ARTHRITIS
     Route: 048
  5. VITAMIN D [Concomitant]
     Indication: RHEUMATOID ARTHRITIS
     Dosage: DAILY
     Route: 048
  6. IRON [Concomitant]
     Indication: ANAEMIA
     Dosage: DAILY
     Route: 048
  7. LIPITOR [Concomitant]
     Indication: BLOOD CHOLESTEROL INCREASED
     Dosage: DAILY
     Route: 048
  8. TRADJENTA [Concomitant]
     Indication: DIABETES MELLITUS
     Dosage: DAILY
  9. FIORICET [Concomitant]
     Indication: MIGRAINE
     Dosage: 50/325/40 MG
  10. LORAZEPAM [Concomitant]
     Indication: ANXIETY
  11. LANSOPRAZOLE [Concomitant]
     Indication: GASTROOESOPHAGEAL REFLUX DISEASE
  12. SERTRALINE [Concomitant]
     Indication: DEPRESSION
  13. LOMOTIL [Concomitant]
     Indication: IRRITABLE BOWEL SYNDROME

REACTIONS (10)
  - Wound [Recovered/Resolved]
  - Blister [Recovered/Resolved]
  - Skin burning sensation [Recovered/Resolved]
  - Pruritus [Recovered/Resolved]
  - Hypersensitivity [Recovered/Resolved]
  - Infection [Recovering/Resolving]
  - Productive cough [Recovering/Resolving]
  - Pyrexia [Recovering/Resolving]
  - Headache [Recovering/Resolving]
  - Sinusitis [Recovering/Resolving]
